FAERS Safety Report 5136016-X (Version None)
Quarter: 2006Q4

REPORT INFORMATION
  Report Type: 
  Country: None (occurrence: None)
  Receive Date: 20061020
  Receipt Date: 20061011
  Transmission Date: 20070319
  Serious: Yes (Other)
  Sender: FDA-Public Use
  Company Number: 2006115285

PATIENT
  Age: 5 Year
  Sex: Male

DRUGS (1)
  1. GENOTROPIN [Suspect]
     Indication: FOETAL GROWTH RETARDATION
     Dosage: 0.4 MG (FREQUENCY: DAILY INTERVAL: EVERY DAY), SUBCUTANEOUS
     Route: 058
     Dates: start: 20050701, end: 20060922

REACTIONS (5)
  - EYELID OEDEMA [None]
  - HEADACHE [None]
  - HYPERTHERMIA [None]
  - PAIN [None]
  - REACTION TO DRUG EXCIPIENTS [None]
